FAERS Safety Report 17909216 (Version 3)
Quarter: 2021Q1

REPORT INFORMATION
  Report Type: Report from Study
  Country: US (occurrence: US)
  Receive Date: 20200617
  Receipt Date: 20210225
  Transmission Date: 20210419
  Serious: Yes (Hospitalization, Other)
  Sender: FDA-Public Use
  Company Number: US-RETROPHIN, INC.-2020RTN00062

PATIENT
  Age: 8 Year
  Sex: Female
  Weight: 25.5 kg

DRUGS (9)
  1. FLONASE [Concomitant]
     Active Substance: FLUTICASONE PROPIONATE
     Dosage: 1 SPRAY, EACH NOSTRIL, NIGHTLY
     Route: 045
     Dates: start: 20190329
  2. FLOVENT HFA [Concomitant]
     Active Substance: FLUTICASONE PROPIONATE
     Dosage: INHALE 2 PUFFS, 2X/DAY
     Route: 048
     Dates: start: 20190313
  3. CHOLIC ACID [Suspect]
     Active Substance: CHOLIC ACID
     Dosage: 300 MG (6 CAPSULES), 1X/DAY
     Route: 048
     Dates: start: 20200408
  4. CHOLIC ACID [Suspect]
     Active Substance: CHOLIC ACID
     Indication: INBORN ERROR IN PRIMARY BILE ACID SYNTHESIS
     Dosage: 300 MG, DAILY (250 MG + 50 MG)
     Dates: start: 20150515, end: 20200407
  5. FLINSTONES MULTIVITAMIN [Concomitant]
     Dosage: 1 TABLETS, 1X/DAY
     Route: 048
     Dates: start: 20180628
  6. FERROUS SULFATE. [Concomitant]
     Active Substance: FERROUS SULFATE
     Dosage: 5 ML, 2X/DAY
     Route: 048
     Dates: start: 20190312
  7. PROVENTIL HFA [Concomitant]
     Active Substance: ALBUTEROL SULFATE
     Dosage: UNK
     Dates: start: 20190312
  8. CHOLBAM [Suspect]
     Active Substance: CHOLIC ACID
     Indication: INBORN ERROR IN PRIMARY BILE ACID SYNTHESIS
     Dosage: 300 MG, DAILY (250 MG + 50 MG)
     Dates: start: 20150515
  9. CLOTRIMAZOLE. [Concomitant]
     Active Substance: CLOTRIMAZOLE
     Dosage: APPLY TOPICALLY, 2X/DAY
     Route: 061

REACTIONS (14)
  - Coagulopathy [Unknown]
  - Thrombocytopenia [Unknown]
  - Portal hypertension [Not Recovered/Not Resolved]
  - Cholangitis [Recovering/Resolving]
  - Abdominal lymphadenopathy [Unknown]
  - Electrocardiogram Q waves [Unknown]
  - Acute on chronic liver failure [Recovering/Resolving]
  - Cytomegalovirus infection [Unknown]
  - Left atrial dilatation [Recovered/Resolved]
  - Cholelithiasis [Unknown]
  - Left ventricular dilatation [Recovered/Resolved]
  - Cardiac murmur [Not Recovered/Not Resolved]
  - Epstein-Barr virus infection [Unknown]
  - Hypersplenism [Unknown]

NARRATIVE: CASE EVENT DATE: 202003
